FAERS Safety Report 11912236 (Version 3)
Quarter: 2017Q1

REPORT INFORMATION
  Report Type: Spontaneous
  Country: CA (occurrence: CA)
  Receive Date: 20160113
  Receipt Date: 20170223
  Transmission Date: 20170428
  Serious: Yes (Other)
  Sender: FDA-Public Use
  Company Number: CA-ROCHE-1520453

PATIENT
  Sex: Female

DRUGS (2)
  1. GABAPENTIN. [Concomitant]
     Active Substance: GABAPENTIN
     Indication: PRODUCT USED FOR UNKNOWN INDICATION
     Route: 065
  2. XOLAIR [Suspect]
     Active Substance: OMALIZUMAB
     Indication: ASTHMA
     Route: 058
     Dates: start: 20060619

REACTIONS (18)
  - Wheezing [Unknown]
  - Urticaria [Unknown]
  - Erythema [Unknown]
  - Back pain [Unknown]
  - Eating disorder [Unknown]
  - Stress [Unknown]
  - Nasopharyngitis [Unknown]
  - Joint dislocation [Unknown]
  - Asthenia [Unknown]
  - Cough [Unknown]
  - Paraesthesia [Unknown]
  - Insomnia [Unknown]
  - Neurogenic bladder [Unknown]
  - Hypoaesthesia [Unknown]
  - Viral infection [Unknown]
  - Flushing [Unknown]
  - Pain [Unknown]
  - Asthma [Unknown]
